FAERS Safety Report 18344957 (Version 3)
Quarter: 2020Q4

REPORT INFORMATION
  Report Type: Spontaneous
  Country: US (occurrence: US)
  Receive Date: 20201005
  Receipt Date: 20201008
  Transmission Date: 20210114
  Serious: Yes (Other)
  Sender: FDA-Public Use
  Company Number: US-PFIZER INC-2020376811

PATIENT
  Age: 69 Year
  Sex: Female
  Weight: 40.82 kg

DRUGS (1)
  1. CHANTIX [Suspect]
     Active Substance: VARENICLINE TARTRATE
     Indication: SMOKING CESSATION THERAPY
     Dosage: UNK

REACTIONS (5)
  - Pulmonary mass [Not Recovered/Not Resolved]
  - Hip fracture [Recovering/Resolving]
  - Upper limb fracture [Recovering/Resolving]
  - Emphysema [Not Recovered/Not Resolved]
  - Impaired driving ability [Unknown]
